FAERS Safety Report 5830743-4 (Version None)
Quarter: 2008Q3

REPORT INFORMATION
  Report Type: 
  Country: None (occurrence: None)
  Receive Date: 20080801
  Receipt Date: 20071101
  Transmission Date: 20090109
  Serious: No
  Sender: FDA-Public Use
  Company Number: US-BRISTOL-MYERS SQUIBB COMPANY-13966965

PATIENT
  Age: 79 Year
  Sex: Male
  Weight: 91 kg

DRUGS (1)
  1. COUMADIN [Suspect]
     Indication: HEART RATE IRREGULAR
     Dosage: 5MG 3-4 WEEKS AGO. ON 17-OCT-2007, INCREASED TO 7.5MG 5 DAYS A WEEK AND 10MG TWICE A WEEK.
     Route: 048
     Dates: start: 20071001

REACTIONS (3)
  - ALCOHOL POISONING [None]
  - DIZZINESS [None]
  - INTERNATIONAL NORMALISED RATIO DECREASED [None]
